FAERS Safety Report 4945287-1 (Version None)
Quarter: 2006Q1

REPORT INFORMATION
  Report Type: 
  Country: None (occurrence: None)
  Receive Date: 20060110
  Receipt Date: 20050628
  Transmission Date: 20060701
  Serious: Yes (Hospitalization)
  Sender: FDA-Public Use
  Company Number: PHEH2005US07250

PATIENT
  Sex: Male

DRUGS (1)
  1. FOCALIN [Suspect]
     Indication: INCORRECT DOSE ADMINISTERED

REACTIONS (1)
  - INTENTIONAL DRUG MISUSE [None]
